FAERS Safety Report 5387495-4 (Version None)
Quarter: 2007Q3

REPORT INFORMATION
  Report Type: 
  Country: None (occurrence: None)
  Receive Date: 20070716
  Receipt Date: 20070705
  Transmission Date: 20080115
  Serious: Yes (Death, Hospitalization, Other)
  Sender: FDA-Public Use
  Company Number: US-AMGEN-US220239

PATIENT
  Sex: Female
  Weight: 40.9 kg

DRUGS (15)
  1. ARANESP [Suspect]
     Indication: ANAEMIA OF MALIGNANT DISEASE
     Route: 065
     Dates: start: 20061201
  2. NEUPOGEN [Suspect]
     Indication: CHEMOTHERAPY
     Route: 065
     Dates: start: 20050720
  3. PROCRIT [Suspect]
     Indication: ANAEMIA OF MALIGNANT DISEASE
     Route: 065
     Dates: start: 20050906, end: 20061201
  4. TOPOTECAN HYDROCHLORIDE [Concomitant]
     Route: 065
     Dates: start: 20050711
  5. GEMCITABINE HCL [Concomitant]
     Route: 065
     Dates: start: 20060503
  6. IRINOTECAN HCL [Concomitant]
     Route: 065
     Dates: start: 20060505
  7. PACLITAXEL [Concomitant]
     Route: 065
     Dates: start: 20060815
  8. CARBOPLATIN [Concomitant]
     Route: 065
     Dates: start: 20060815
  9. ETOPOSIDE [Concomitant]
     Route: 065
     Dates: start: 20050711
  10. PROTONIX [Concomitant]
     Route: 065
  11. DARVOCET [Concomitant]
     Route: 065
  12. ALBUTEROL [Concomitant]
     Route: 055
  13. LASIX [Concomitant]
     Route: 065
  14. POTASSIUM CHLORIDE [Concomitant]
     Route: 065
  15. CISPLATIN [Concomitant]
     Dates: start: 20050711

REACTIONS (8)
  - CARDIAC FAILURE [None]
  - MALIGNANT NEOPLASM PROGRESSION [None]
  - METASTASES TO CENTRAL NERVOUS SYSTEM [None]
  - METASTASES TO LIVER [None]
  - METASTASES TO THE MEDIASTINUM [None]
  - PNEUMONIA [None]
  - RESPIRATORY FAILURE [None]
  - THROMBOCYTOPENIA [None]
